FAERS Safety Report 12298424 (Version 2)
Quarter: 2016Q2

REPORT INFORMATION
  Report Type: Spontaneous
  Country: US (occurrence: US)
  Receive Date: 20160424
  Receipt Date: 20160429
  Transmission Date: 20160815
  Serious: No
  Sender: FDA-Public Use
  Company Number: US-009507513-1604USA013481

PATIENT
  Age: 21 Year
  Sex: Female
  Weight: 86.17 kg

DRUGS (1)
  1. NEXPLANON [Suspect]
     Active Substance: ETONOGESTREL
     Indication: CONTRACEPTION
     Dosage: 1 DF, EVERY 3 YEARS, LEFT ARM - IMPLANT
     Route: 059
     Dates: start: 20160225

REACTIONS (2)
  - Feeling abnormal [Unknown]
  - Implant site warmth [Unknown]

NARRATIVE: CASE EVENT DATE: 20160418
